FAERS Safety Report 4507262-0 (Version None)
Quarter: 2004Q4

REPORT INFORMATION
  Report Type: 
  Country: None (occurrence: None)
  Receive Date: 20041119
  Receipt Date: 20041103
  Transmission Date: 20050328
  Serious: Yes (Hospitalization, Other)
  Sender: FDA-Public Use
  Company Number: 2004S1003280

PATIENT
  Age: 30 Month
  Sex: Female
  Weight: 12.5 kg

DRUGS (1)
  1. VERAPAMIL [Suspect]
     Indication: VENTRICULAR TACHYCARDIA
     Dosage: 12 MG Q8H, ORAL
     Route: 048
     Dates: start: 20041025

REACTIONS (3)
  - DISEASE RECURRENCE [None]
  - DRUG INEFFECTIVE [None]
  - VENTRICULAR TACHYCARDIA [None]
